FAERS Safety Report 8488485-5 (Version None)
Quarter: 2012Q3

REPORT INFORMATION
  Report Type: 
  Country: None (occurrence: None)
  Receive Date: 20120705
  Receipt Date: 20120702
  Transmission Date: 20120928
  Serious: Yes (Other)
  Sender: FDA-Public Use
  Company Number: US-PFIZER INC-2012159728

PATIENT
  Sex: Female
  Weight: 80.272 kg

DRUGS (5)
  1. POTASSIUM [Concomitant]
     Dosage: UNK
  2. WARFARIN [Concomitant]
     Dosage: UNK
  3. TIKOSYN [Suspect]
     Indication: ATRIAL FIBRILLATION
     Dosage: UNK
     Dates: start: 20081101, end: 20080101
  4. AMIODARONE HCL [Suspect]
     Indication: ATRIAL FIBRILLATION
     Dosage: 200 MG, DAILY
     Dates: start: 20060101, end: 20080101
  5. FUROSEMIDE [Concomitant]
     Dosage: UNK

REACTIONS (6)
  - FEELING ABNORMAL [None]
  - ELECTROCARDIOGRAM QT PROLONGED [None]
  - PULMONARY HYPERTENSION [None]
  - THYROID DISORDER [None]
  - URINARY TRACT INFECTION [None]
  - DRUG INEFFECTIVE [None]
